FAERS Safety Report 10008619 (Version 2)
Quarter: 2016Q3

REPORT INFORMATION
  Report Type: Spontaneous
  Country: CN (occurrence: CN)
  Receive Date: 20140313
  Receipt Date: 20160801
  Transmission Date: 20161108
  Serious: Yes (Hospitalization, Other)
  Sender: FDA-Public Use
  Company Number: CN-BRISTOL-MYERS SQUIBB COMPANY-20469003

PATIENT
  Age: 58 Year
  Sex: Male

DRUGS (4)
  1. PIOGLITAZONE HCL [Suspect]
     Active Substance: PIOGLITAZONE
     Indication: DIABETES MELLITUS
     Dosage: 15 MG, QD
     Route: 048
  2. NOVORAPID [Suspect]
     Active Substance: INSULIN ASPART
     Indication: DIABETES MELLITUS
     Dosage: 1DF: 16U MORNING, 14U AFTERNOON, 14U EVENING, 30U BEFORE BED
     Route: 065
  3. METFORMIN HYDROCHLORIDE. [Suspect]
     Active Substance: METFORMIN HYDROCHLORIDE
     Indication: DIABETES MELLITUS
     Dosage: 500 MG, BID
     Route: 065
  4. INSULIN GLARGINE [Suspect]
     Active Substance: INSULIN GLARGINE
     Indication: DIABETES MELLITUS
     Dosage: 1DF: 30U,DOSE DECREASED FROM 75U TO 66U.
     Route: 065

REACTIONS (2)
  - Demyelination [Recovered/Resolved]
  - Diabetic neuropathy [Recovered/Resolved]
